FAERS Safety Report 10035617 (Version 3)
Quarter: 2014Q2

REPORT INFORMATION
  Report Type: Report from Study
  Country: JP (occurrence: JP)
  Receive Date: 20140325
  Receipt Date: 20140505
  Transmission Date: 20141212
  Serious: Yes (Hospitalization, Disabling)
  Sender: FDA-Public Use
  Company Number: JP-B.I. PHARMACEUTICALS,INC./RIDGEFIELD-2014-BI-12765GD

PATIENT
  Age: 88 Year
  Sex: Female
  Weight: 56 kg

DRUGS (4)
  1. PRADAXA [Suspect]
     Indication: ATRIAL FIBRILLATION
     Dosage: 220 MG
     Route: 048
     Dates: start: 201109, end: 20120323
  2. PARIET [Concomitant]
     Indication: PROPHYLAXIS
     Dosage: 10 MG
     Route: 048
     Dates: end: 20120323
  3. GLUCONSAN K [Concomitant]
     Indication: HYPOKALAEMIA
     Dosage: 1 G
     Route: 048
     Dates: end: 20120323
  4. GASTER D [Concomitant]
     Indication: PRODUCT USED FOR UNKNOWN INDICATION
     Dosage: 20 MG
     Route: 048
     Dates: end: 20120323

REACTIONS (1)
  - Embolic stroke [Recovered/Resolved with Sequelae]
